FAERS Safety Report 20146977 (Version 1)
Quarter: 2021Q4

REPORT INFORMATION
  Report Type: Spontaneous
  Country: US (occurrence: US)
  Receive Date: 20211203
  Receipt Date: 20211203
  Transmission Date: 20220303
  Serious: No
  Sender: FDA-Public Use
  Company Number: US-SA-SAC20211122001057

PATIENT
  Age: 72 Year
  Sex: Female

DRUGS (12)
  1. DUPIXENT [Suspect]
     Active Substance: DUPILUMAB
     Indication: Dermatitis atopic
     Dosage: 300 MG, UNK
     Route: 058
     Dates: start: 20211103
  2. ANASTROZOLE [Concomitant]
     Active Substance: ANASTROZOLE
  3. JANUMET [Concomitant]
     Active Substance: METFORMIN HYDROCHLORIDE\SITAGLIPTIN PHOSPHATE
  4. JARDIANCE [Concomitant]
     Active Substance: EMPAGLIFLOZIN
  5. LATANOPROST [Concomitant]
     Active Substance: LATANOPROST
  6. LISINOPRIL [Concomitant]
     Active Substance: LISINOPRIL
  7. NAPROXEN [Concomitant]
     Active Substance: NAPROXEN
  8. ROSUVASTATIN [Concomitant]
     Active Substance: ROSUVASTATIN
  9. TRAZODONE [Concomitant]
     Active Substance: TRAZODONE HYDROCHLORIDE
  10. MAGNESIUM [Concomitant]
     Active Substance: MAGNESIUM
  11. VITAMINS NOS [Concomitant]
     Active Substance: VITAMINS
  12. CINNAMON\HERBALS [Concomitant]
     Active Substance: CINNAMON\HERBALS

REACTIONS (1)
  - Pruritus [Unknown]
